FAERS Safety Report 6436358-1 (Version None)
Quarter: 2009Q4

REPORT INFORMATION
  Report Type: 
  Country: None (occurrence: None)
  Receive Date: 20091110
  Receipt Date: 20091110
  Transmission Date: 20100525
  Serious: Yes (Hospitalization)
  Sender: FDA-Public Use
  Company Number: None

PATIENT
  Age: 96 Year
  Sex: Male
  Weight: 60.3284 kg

DRUGS (2)
  1. INVANZ [Suspect]
  2. VANCOMYCIN [Suspect]

REACTIONS (6)
  - CONFUSIONAL STATE [None]
  - DELUSION [None]
  - EATING DISORDER [None]
  - MOTOR DYSFUNCTION [None]
  - MUSCULOSKELETAL STIFFNESS [None]
  - TONGUE DISORDER [None]
